FAERS Safety Report 5754387-8 (Version None)
Quarter: 2008Q2

REPORT INFORMATION
  Report Type: 
  Country: None (occurrence: None)
  Receive Date: 20080530
  Receipt Date: 20080519
  Transmission Date: 20081010
  Serious: Yes (Other)
  Sender: FDA-Public Use
  Company Number: US-PFIZER INC-2008029459

PATIENT
  Sex: Female

DRUGS (2)
  1. GEODON [Suspect]
  2. ZYPREXA [Suspect]
     Dates: start: 20080101, end: 20080101

REACTIONS (5)
  - DRUG INEFFECTIVE [None]
  - FLIGHT OF IDEAS [None]
  - INCREASED APPETITE [None]
  - SOMNOLENCE [None]
  - WEIGHT INCREASED [None]
